FAERS Safety Report 9549331 (Version 1)
Quarter: 2013Q3

REPORT INFORMATION
  Report Type: Spontaneous
  Country: US (occurrence: US)
  Receive Date: 20130924
  Receipt Date: 20130924
  Transmission Date: 20140515
  Serious: Yes (Other)
  Sender: FDA-Public Use
  Company Number: US-PFIZER INC-2013272492

PATIENT
  Age: 74 Year
  Sex: Female
  Weight: 54.4 kg

DRUGS (4)
  1. PREMARIN [Suspect]
     Dosage: 0.625 MG, 1X/DAY
     Route: 048
     Dates: start: 1988
  2. PREMARIN [Suspect]
     Dosage: 0.3 MG, 1X/DAY
     Route: 048
  3. PREMARIN [Suspect]
     Dosage: UNK, 3X/WEEK
     Route: 067
  4. ENALAPRIL MALEATE [Suspect]
     Indication: HYPERTENSION
     Dosage: 20 MG, 1X/DAY
     Dates: start: 1993

REACTIONS (3)
  - Sinusitis [Unknown]
  - Incorrect dose administered [Unknown]
  - Hormone level abnormal [Unknown]
